FAERS Safety Report 7098844-3 (Version None)
Quarter: 2010Q4

REPORT INFORMATION
  Report Type: 
  Country: None (occurrence: None)
  Receive Date: 20101112
  Receipt Date: 20101104
  Transmission Date: 20110411
  Serious: Yes (Other)
  Sender: FDA-Public Use
  Company Number: US-US-EMD SERONO, INC.-430007N06USA

PATIENT
  Sex: Female
  Weight: 100 kg

DRUGS (5)
  1. NOVANTRONE [Suspect]
     Indication: MULTIPLE SCLEROSIS
     Route: 042
     Dates: start: 19990101, end: 20030428
  2. HYDROCHLOROTHIAZIDE [Concomitant]
     Indication: HYPERTENSION
  3. LISINOPRIL [Concomitant]
  4. MULTI-VITAMINS [Concomitant]
  5. STEROIDS [Concomitant]
     Indication: MULTIPLE SCLEROSIS

REACTIONS (5)
  - CARDIAC MURMUR [None]
  - CHRONIC MYELOID LEUKAEMIA [None]
  - ELECTROCARDIOGRAM T WAVE INVERSION [None]
  - HEART SOUNDS ABNORMAL [None]
  - PREMATURE MENOPAUSE [None]
